FAERS Safety Report 24282739 (Version 1)
Quarter: 2024Q3

REPORT INFORMATION
  Report Type: Spontaneous
  Country: US (occurrence: None)
  Receive Date: 20240902
  Receipt Date: 20240902
  Transmission Date: 20241017
  Serious: Yes (unspecified)
  Sender: Public
  Company Number: None

PATIENT
  Age: 58 Year
  Sex: Female
  Weight: 76.5 kg

DRUGS (8)
  1. TYRVAYA [Suspect]
     Active Substance: VARENICLINE TARTRATE
     Indication: Dry eye
     Dosage: OTHER QUANTITY : 1 SPRAY(S)?FREQUENCY : EVERY 12 HOURS?OTHER ROUTE : NASAL SPRAY?
     Route: 050
     Dates: start: 20230530, end: 20240901
  2. CELEXA [Concomitant]
     Active Substance: CITALOPRAM HYDROBROMIDE
  3. FAMOTIDINE [Concomitant]
     Active Substance: FAMOTIDINE
  4. lvizia eye drops [Concomitant]
  5. VITAMIN D3 [Concomitant]
     Active Substance: CHOLECALCIFEROL
  6. HYALURONIC ACID [Concomitant]
     Active Substance: HYALURONIC ACID
  7. vaginal suppositories [Concomitant]
  8. cytoplasmic blend pollen extract [Concomitant]

REACTIONS (4)
  - Nasal discomfort [None]
  - Nasal crusting [None]
  - Epistaxis [None]
  - Product formulation issue [None]

NARRATIVE: CASE EVENT DATE: 20240630
